FAERS Safety Report 8605889-8 (Version None)
Quarter: 2012Q3

REPORT INFORMATION
  Report Type: 
  Country: None (occurrence: None)
  Receive Date: 20120820
  Receipt Date: 20120706
  Transmission Date: 20120928
  Serious: Yes (Hospitalization)
  Sender: FDA-Public Use
  Company Number: JP-GLAXOSMITHKLINE-B0813787A

PATIENT
  Sex: Female
  Weight: 74 kg

DRUGS (23)
  1. REVOLADE [Suspect]
     Dosage: 25MG PER DAY
     Route: 048
     Dates: start: 20120222, end: 20120318
  2. PREDNISOLONE [Concomitant]
     Dosage: 10MG PER DAY
     Route: 048
     Dates: start: 20110526, end: 20110608
  3. PREDNISOLONE [Concomitant]
     Dosage: 15MG PER DAY
     Route: 048
     Dates: start: 20120302, end: 20120309
  4. PREDNISOLONE [Concomitant]
     Dosage: 30MG PER DAY
     Route: 048
     Dates: start: 20120315
  5. ALFAROL [Concomitant]
     Indication: OSTEOPOROSIS PROPHYLAXIS
     Dosage: 2MCG PER DAY
     Route: 048
     Dates: end: 20110706
  6. CEPHARANTHINE [Concomitant]
     Indication: IDIOPATHIC THROMBOCYTOPENIC PURPURA
     Dosage: 50MG PER DAY
     Route: 048
     Dates: end: 20111110
  7. XYZAL [Concomitant]
     Dosage: 5MG PER DAY
     Route: 048
     Dates: start: 20110609, end: 20110706
  8. EPINASTINE HYDROCHLORIDE [Concomitant]
     Dosage: 20MG PER DAY
     Route: 048
     Dates: start: 20111021, end: 20120208
  9. AMOXICILLIN [Concomitant]
     Indication: INFECTION PROPHYLAXIS
     Dosage: 500MG PER DAY
     Route: 048
     Dates: start: 20120304
  10. NEORAL [Concomitant]
     Dosage: 150MG PER DAY
     Route: 048
     Dates: start: 20110623, end: 20110706
  11. NEORAL [Concomitant]
     Dosage: 50MG PER DAY
     Route: 048
     Dates: start: 20110728, end: 20110819
  12. PREDNISOLONE [Concomitant]
     Indication: IDIOPATHIC THROMBOCYTOPENIC PURPURA
     Dosage: 25MG PER DAY
     Route: 048
     Dates: end: 20110429
  13. PREDNISOLONE [Concomitant]
     Dosage: 20MG PER DAY
     Route: 048
     Dates: start: 20110430, end: 20110511
  14. PREDNISOLONE [Concomitant]
     Dosage: 30MG PER DAY
     Route: 048
     Dates: start: 20120225, end: 20120302
  15. CEPHARANTHINE [Concomitant]
     Dosage: 25MG PER DAY
     Route: 048
     Dates: start: 20111111, end: 20111201
  16. REVOLADE [Suspect]
     Indication: IDIOPATHIC THROMBOCYTOPENIC PURPURA
     Dosage: 12.5MG PER DAY
     Route: 048
     Dates: start: 20110416, end: 20120221
  17. NEORAL [Concomitant]
     Dosage: 100MG PER DAY
     Route: 048
     Dates: start: 20110707, end: 20110727
  18. REVOLADE [Suspect]
     Dosage: 37.5MG PER DAY
     Route: 048
     Dates: start: 20120319, end: 20120413
  19. NEORAL [Concomitant]
     Indication: IDIOPATHIC THROMBOCYTOPENIC PURPURA
     Dosage: 200MG PER DAY
     Route: 048
     Dates: end: 20110622
  20. PREDNISOLONE [Concomitant]
     Dosage: 15MG PER DAY
     Route: 048
     Dates: start: 20110512, end: 20110525
  21. PREDNISOLONE [Concomitant]
     Dosage: 5MG PER DAY
     Route: 048
     Dates: start: 20120310, end: 20120314
  22. THEO-DUR [Concomitant]
     Dosage: 400MG PER DAY
     Route: 048
  23. REVOLADE [Suspect]
     Dosage: 50MG PER DAY
     Route: 048
     Dates: start: 20120414

REACTIONS (1)
  - SEPSIS [None]
